FAERS Safety Report 12631148 (Version 2)
Quarter: 2016Q3

REPORT INFORMATION
  Report Type: Spontaneous
  Country: US (occurrence: US)
  Receive Date: 20160808
  Receipt Date: 20160808
  Transmission Date: 20161109
  Serious: No
  Sender: FDA-Public Use
  Company Number: US-BEH-2015052485

PATIENT
  Sex: Female
  Weight: 112 kg

DRUGS (15)
  1. DIPHENHYDRAMINE. [Concomitant]
     Active Substance: DIPHENHYDRAMINE
  2. VALSARTAN. [Concomitant]
     Active Substance: VALSARTAN
  3. XANAX [Concomitant]
     Active Substance: ALPRAZOLAM
  4. CARVEDILOL. [Concomitant]
     Active Substance: CARVEDILOL
  5. ASPIRIN. [Concomitant]
     Active Substance: ASPIRIN
  6. KLOR-CON [Concomitant]
     Active Substance: POTASSIUM CHLORIDE
  7. EPIPEN [Concomitant]
     Active Substance: EPINEPHRINE
  8. FUROSEMIDE. [Concomitant]
     Active Substance: FUROSEMIDE
  9. HIZENTRA [Suspect]
     Active Substance: HUMAN IMMUNOGLOBULIN G
     Indication: IMMUNODEFICIENCY COMMON VARIABLE
     Dosage: 10 GM 50 ML VIAL
     Route: 058
  10. SODIUM CHLORIDE. [Concomitant]
     Active Substance: SODIUM CHLORIDE
  11. IBUPROFEN. [Concomitant]
     Active Substance: IBUPROFEN
  12. PRILOSEC [Concomitant]
     Active Substance: OMEPRAZOLE MAGNESIUM
  13. DICYCLOMINE [Concomitant]
     Active Substance: DICYCLOMINE HYDROCHLORIDE
  14. SIMVASTATIN. [Concomitant]
     Active Substance: SIMVASTATIN
  15. BUPROPION. [Concomitant]
     Active Substance: BUPROPION

REACTIONS (2)
  - Administration site bruise [Unknown]
  - Fatigue [Unknown]
